FAERS Safety Report 16829797 (Version 1)
Quarter: 2019Q3

REPORT INFORMATION
  Report Type: Report from Study
  Country: IT (occurrence: IT)
  Receive Date: 20190919
  Receipt Date: 20190919
  Transmission Date: 20191005
  Serious: Yes (Hospitalization)
  Sender: FDA-Public Use
  Company Number: IT-ROCHE-2405055

PATIENT
  Age: 34 Year
  Sex: Male

DRUGS (3)
  1. ZOLPIDEM [Interacting]
     Active Substance: ZOLPIDEM TARTRATE
     Indication: PRODUCT USED FOR UNKNOWN INDICATION
     Dosage: MEAN DAILY DOSE OF 300MG (DIAZEPAM-EQUIVALENT DOSE: 125MG)
     Route: 065
  2. DIAZEPAM. [Suspect]
     Active Substance: DIAZEPAM
     Indication: PRODUCT USED FOR UNKNOWN INDICATION
     Dosage: 50 MILLIGRAM DAILY;
     Route: 065
  3. LORMETAZEPAM [Interacting]
     Active Substance: LORMETAZEPAM
     Indication: PRODUCT USED FOR UNKNOWN INDICATION
     Dosage: MEAN DAILY DOSE OF 30MG
     Route: 065

REACTIONS (6)
  - Drug abuse [Unknown]
  - Transaminases increased [Unknown]
  - Drug dependence [Unknown]
  - Labelled drug-drug interaction medication error [Unknown]
  - Alanine aminotransferase increased [Unknown]
  - Intentional overdose [Unknown]
